FAERS Safety Report 9642137 (Version 1)
Quarter: 2013Q4

REPORT INFORMATION
  Report Type: Report from Study
  Country: CA (occurrence: CA)
  Receive Date: 20131023
  Receipt Date: 20131023
  Transmission Date: 20140711
  Serious: Yes (Hospitalization)
  Sender: FDA-Public Use
  Company Number: CA-ROCHE-1292135

PATIENT
  Age: 46 Year
  Sex: Female

DRUGS (14)
  1. TRASTUZUMAB [Suspect]
     Indication: PRODUCT USED FOR UNKNOWN INDICATION
     Route: 042
  2. TRASTUZUMAB [Suspect]
     Dosage: FREQUENCY: CYCLICAL
     Route: 042
  3. CARBOPLATIN [Suspect]
     Indication: PRODUCT USED FOR UNKNOWN INDICATION
     Dosage: DURATION: 91 DAYS
     Route: 042
  4. DOCETAXEL [Suspect]
     Indication: PRODUCT USED FOR UNKNOWN INDICATION
     Dosage: DURATION: 91 DAYS
     Route: 042
  5. DOCETAXEL [Suspect]
     Route: 042
  6. DEXAMETHASONE [Concomitant]
  7. EMEND [Concomitant]
     Route: 065
  8. ENDOCET [Concomitant]
     Route: 065
  9. LEVOTHYROXINE [Concomitant]
  10. MELOXICAM [Concomitant]
  11. NEULASTA [Concomitant]
     Route: 058
  12. PROPRANOLOL [Concomitant]
  13. QUETIAPINE [Concomitant]
     Route: 065
  14. ZOFRAN [Concomitant]

REACTIONS (1)
  - Sepsis [Unknown]
